FAERS Safety Report 17022251 (Version 1)
Quarter: 2019Q4

REPORT INFORMATION
  Report Type: Spontaneous
  Country: SE (occurrence: SE)
  Receive Date: 20191112
  Receipt Date: 20191112
  Transmission Date: 20200122
  Serious: Yes (Life-Threatening)
  Sender: FDA-Public Use
  Company Number: SE-MYLANLABS-2019M1107067

PATIENT
  Age: 36 Year
  Sex: Female

DRUGS (4)
  1. FUROSEMIDE. [Suspect]
     Active Substance: FUROSEMIDE
     Indication: URINE OUTPUT DECREASED
     Dosage: UNK
     Route: 048
  2. NATRIUMKLORID BAXTER [Suspect]
     Active Substance: SODIUM CHLORIDE
     Indication: INTRA-AMNIOTIC INJECTION
     Dosage: 500 ML INFUSED THROUGH AN INFUSION PUMP DURING 50 MIN, HALF AN HOUR LATER,WHEN 200 ML BEEN GIVE
     Route: 041
  3. LABETALOL [Suspect]
     Active Substance: LABETALOL\LABETALOL HYDROCHLORIDE
     Indication: PRE-ECLAMPSIA
     Route: 048
  4. FUROSEMIDE. [Suspect]
     Active Substance: FUROSEMIDE
     Indication: PULMONARY OEDEMA
     Dosage: UNK
     Route: 042

REACTIONS (2)
  - Pulmonary oedema [Recovered/Resolved]
  - Maternal exposure during pregnancy [Recovered/Resolved]
